FAERS Safety Report 4538414-1 (Version None)
Quarter: 2004Q4

REPORT INFORMATION
  Report Type: 
  Country: None (occurrence: None)
  Receive Date: 20041221
  Receipt Date: 20041206
  Transmission Date: 20050328
  Serious: Yes (Life-Threatening, Hospitalization)
  Sender: FDA-Public Use
  Company Number: 2004GB00871

PATIENT
  Age: 64 Year
  Sex: Male
  Weight: 71 kg

DRUGS (5)
  1. CRESTOR [Suspect]
     Indication: HYPERCHOLESTEROLAEMIA
     Dosage: 20 MG HS PO
     Route: 048
     Dates: start: 20031030, end: 20040304
  2. RAMIPRIL [Concomitant]
  3. DOTHIEPIN HYDROCHLORIDE [Concomitant]
  4. BENDROFLUAZIDE [Concomitant]
  5. ATORVASTATIN [Concomitant]

REACTIONS (4)
  - HAEMATURIA [None]
  - RENAL FAILURE [None]
  - RENAL TUBULAR NECROSIS [None]
  - URINARY CASTS [None]
